FAERS Safety Report 20659639 (Version 11)
Quarter: 2025Q1

REPORT INFORMATION
  Report Type: Spontaneous
  Country: US (occurrence: US)
  Receive Date: 20220331
  Receipt Date: 20250310
  Transmission Date: 20250409
  Serious: Yes (Other)
  Sender: PFIZER
  Company Number: US-PFIZER INC-2021820901

PATIENT
  Age: 70 Year
  Sex: Female
  Weight: 73.03 kg

DRUGS (6)
  1. IBRANCE [Suspect]
     Active Substance: PALBOCICLIB
     Indication: Breast cancer female
     Dosage: 125 MG, DAILY
     Dates: start: 2018
  2. IBRANCE [Suspect]
     Active Substance: PALBOCICLIB
     Route: 048
     Dates: start: 20180709, end: 20230424
  3. IBRANCE [Suspect]
     Active Substance: PALBOCICLIB
     Route: 048
     Dates: start: 20230622
  4. IBRANCE [Suspect]
     Active Substance: PALBOCICLIB
     Route: 048
  5. FEMARA [Concomitant]
     Active Substance: LETROZOLE
     Dates: start: 20180709, end: 20230424
  6. FEMARA [Concomitant]
     Active Substance: LETROZOLE
     Dates: start: 20230622

REACTIONS (10)
  - Oral surgery [Unknown]
  - Leukopenia [Unknown]
  - Neutropenia [Unknown]
  - Anaemia macrocytic [Unknown]
  - Vitamin B12 deficiency [Unknown]
  - Confusional state [Unknown]
  - Panic reaction [Unknown]
  - Throat irritation [Unknown]
  - Nasopharyngitis [Unknown]
  - Malaise [Unknown]

NARRATIVE: CASE EVENT DATE: 20231016
